FAERS Safety Report 7633298-7 (Version None)
Quarter: 2011Q3

REPORT INFORMATION
  Report Type: 
  Country: None (occurrence: None)
  Receive Date: 20110725
  Receipt Date: 20110720
  Transmission Date: 20111222
  Serious: Yes (Other)
  Sender: FDA-Public Use
  Company Number: GB-TEVA-291735ISR

PATIENT
  Age: 79 Year
  Sex: Female
  Weight: 61.67 kg

DRUGS (1)
  1. TRIMETHOPRIM [Suspect]
     Indication: URINARY TRACT INFECTION
     Dates: end: 20110624

REACTIONS (4)
  - MYALGIA [None]
  - PAIN [None]
  - HEADACHE [None]
  - NAUSEA [None]
